FAERS Safety Report 9911481 (Version 2)
Quarter: 2014Q2

REPORT INFORMATION
  Report Type: Report from Study
  Country: MX (occurrence: MX)
  Receive Date: 20140219
  Receipt Date: 20140401
  Transmission Date: 20141212
  Serious: Yes (Other)
  Sender: FDA-Public Use
  Company Number: PHHY2014MX019962

PATIENT
  Age: 84 Year
  Sex: Female

DRUGS (3)
  1. DIOVAN [Suspect]
     Indication: HYPERTENSION
     Dosage: 1 TABLET (160 MG) DAILY
     Route: 048
     Dates: start: 2009, end: 2012
  2. NEURONTIN [Concomitant]
     Dosage: 1 UKN, DAILY
  3. LERTUS CD [Concomitant]
     Dosage: 1 UKN, Q12H

REACTIONS (4)
  - Breast cancer [Recovered/Resolved]
  - Blood pressure increased [Recovered/Resolved]
  - Blood cholesterol increased [Unknown]
  - Drug ineffective [Recovered/Resolved]
